FAERS Safety Report 10784733 (Version 1)
Quarter: 2015Q1

REPORT INFORMATION
  Report Type: Spontaneous
  Country: PT (occurrence: PT)
  Receive Date: 20150211
  Receipt Date: 20150211
  Transmission Date: 20150721
  Serious: Yes (Hospitalization)
  Sender: FDA-Public Use
  Company Number: PT-TEVA-538650ISR

PATIENT
  Age: 20 Year
  Sex: Male
  Weight: 75 kg

DRUGS (2)
  1. GABITRIL [Suspect]
     Active Substance: TIAGABINE HYDROCHLORIDE
     Indication: DRUG DETOXIFICATION
     Dosage: 5 MILLIGRAM DAILY;
     Route: 048
     Dates: start: 20141230, end: 20150119
  2. TOPIRAMATO [Concomitant]
     Active Substance: TOPIRAMATE
     Indication: DRUG DETOXIFICATION
     Dosage: 100 MILLIGRAM DAILY;
     Route: 048
     Dates: start: 20141230

REACTIONS (5)
  - Suicidal ideation [Recovering/Resolving]
  - Seizure [Recovering/Resolving]
  - Intentional overdose [Recovering/Resolving]
  - Toxicity to various agents [Recovering/Resolving]
  - Off label use [Unknown]

NARRATIVE: CASE EVENT DATE: 20141230
